FAERS Safety Report 8158670 (Version 4)
Quarter: 2013Q3

REPORT INFORMATION
  Report Type: Spontaneous
  Country: US (occurrence: US)
  Receive Date: 20110927
  Receipt Date: 20130912
  Transmission Date: 20140515
  Serious: Yes (Hospitalization)
  Sender: FDA-Public Use
  Company Number: US-GLAXOSMITHKLINE-A0915600A

PATIENT
  Age: 76 Year
  Sex: Female
  Weight: 77.3 kg

DRUGS (1)
  1. AVANDIA [Suspect]
     Indication: DIABETES MELLITUS
     Dosage: 4MG TWICE PER DAY
     Route: 048
     Dates: start: 2004, end: 2006

REACTIONS (11)
  - Myocardial infarction [Unknown]
  - Acute coronary syndrome [Unknown]
  - Atrial fibrillation [Unknown]
  - Hyperthyroidism [Unknown]
  - Coronary artery disease [Unknown]
  - Hyperlipidaemia [Unknown]
  - Coronary artery disease [Unknown]
  - Dyslipidaemia [Unknown]
  - Hypertension [Unknown]
  - Oedema [Unknown]
  - Angina pectoris [Unknown]
